FAERS Safety Report 4940415-6 (Version None)
Quarter: 2006Q1

REPORT INFORMATION
  Report Type: 
  Country: None (occurrence: None)
  Receive Date: 20060127
  Receipt Date: 20041130
  Transmission Date: 20060701
  Serious: Yes (Other)
  Sender: FDA-Public Use
  Company Number: 200419210US

PATIENT
  Age: 59 Year
  Sex: Male
  Weight: 99 kg

DRUGS (6)
  1. GLIMEPIRIDE (AMARYL) [Suspect]
     Indication: DIABETES MELLITUS NON-INSULIN-DEPENDENT
     Dosage: 1 MG QD; 2 MG QD
     Dates: start: 20040701, end: 20040901
  2. GLIMEPIRIDE (AMARYL) [Suspect]
     Indication: DIABETES MELLITUS NON-INSULIN-DEPENDENT
     Dosage: 1 MG QD; 2 MG QD
     Dates: start: 20040901, end: 20041101
  3. . [Concomitant]
  4. METFORMIN [Concomitant]
  5. CANDESARTAN CILEXETIL (ATACAND) [Concomitant]
  6. ASPIRIN [Concomitant]

REACTIONS (3)
  - ALANINE AMINOTRANSFERASE INCREASED [None]
  - ASPARTATE AMINOTRANSFERASE INCREASED [None]
  - HEPATIC ENZYME INCREASED [None]
